FAERS Safety Report 6788214-7 (Version None)
Quarter: 2010Q2

REPORT INFORMATION
  Report Type: 
  Country: None (occurrence: None)
  Receive Date: 20100623
  Receipt Date: 20080214
  Transmission Date: 20101027
  Serious: No
  Sender: FDA-Public Use
  Company Number: US-PFIZER INC-2008014746

PATIENT
  Sex: Female
  Weight: 68.04 kg

DRUGS (6)
  1. GEODON [Suspect]
     Indication: BIPOLAR DISORDER
     Route: 048
     Dates: end: 20071220
  2. PROVIGIL [Suspect]
     Indication: SEDATION
     Route: 048
     Dates: start: 20070501, end: 20071220
  3. EFFEXOR XR [Suspect]
     Indication: BIPOLAR DISORDER
     Route: 048
     Dates: start: 20070101, end: 20071220
  4. MIRAPEX [Concomitant]
  5. LAMICTAL [Concomitant]
  6. WELLBUTRIN XL [Concomitant]

REACTIONS (1)
  - ALANINE AMINOTRANSFERASE INCREASED [None]
